FAERS Safety Report 19936177 (Version 1)
Quarter: 2021Q4

REPORT INFORMATION
  Report Type: Spontaneous
  Country: SV (occurrence: SV)
  Receive Date: 20211008
  Receipt Date: 20211008
  Transmission Date: 20220303
  Serious: Yes (Death, Other)
  Sender: FDA-Public Use
  Company Number: SV-BRISTOL-MYERS SQUIBB COMPANY-BMS-2021-102556

PATIENT
  Age: 47 Year
  Sex: Female

DRUGS (1)
  1. SPRYCEL [Suspect]
     Active Substance: DASATINIB
     Indication: Chronic myeloid leukaemia
     Dosage: 100 MILLIGRAM (2 X 50 MG)
     Route: 065

REACTIONS (1)
  - Death [Fatal]
